FAERS Safety Report 13496426 (Version 1)
Quarter: 2017Q2

REPORT INFORMATION
  Report Type: Spontaneous
  Country: US (occurrence: US)
  Receive Date: 20170428
  Receipt Date: 20170428
  Transmission Date: 20170830
  Serious: Yes (Other)
  Sender: FDA-Public Use
  Company Number: US-ASTELLAS-2017US015963

PATIENT
  Sex: Male

DRUGS (1)
  1. LEXISCAN [Suspect]
     Active Substance: REGADENOSON
     Indication: CARDIAC STRESS TEST
     Dosage: 400 UG/5ML, UNKNOWN FREQ.
     Route: 040
     Dates: start: 201703, end: 201703

REACTIONS (2)
  - Blood pressure decreased [Unknown]
  - Heart rate increased [Unknown]
